FAERS Safety Report 7669690-4 (Version None)
Quarter: 2011Q3

REPORT INFORMATION
  Report Type: 
  Country: None (occurrence: None)
  Receive Date: 20110808
  Receipt Date: 20110729
  Transmission Date: 20111222
  Serious: Yes (Other)
  Sender: FDA-Public Use
  Company Number: CN-ASTRAZENECA-2011SE45173

PATIENT
  Age: 55 Year
  Sex: Male

DRUGS (5)
  1. LIDOCAINE [Suspect]
     Dosage: 1000 MG, 1-2 MG PER MINUTES
     Route: 041
  2. GLUCOSE [Concomitant]
     Route: 042
  3. GLUCOSE [Concomitant]
     Route: 042
  4. LIDOCAINE [Suspect]
     Indication: VENTRICULAR EXTRASYSTOLES
     Route: 042
  5. CAPTOPRIL [Concomitant]
     Route: 048

REACTIONS (2)
  - LOGORRHOEA [None]
  - DELIRIUM [None]
